FAERS Safety Report 25719377 (Version 1)
Quarter: 2025Q3

REPORT INFORMATION
  Report Type: Spontaneous
  Country: AU (occurrence: AU)
  Receive Date: 20250824
  Receipt Date: 20250824
  Transmission Date: 20251021
  Serious: Yes (Other)
  Sender: SANDOZ
  Company Number: AU-SUN PHARMACEUTICAL INDUSTRIES LTD-2025RR-516479

PATIENT
  Age: 49 Year
  Sex: Male

DRUGS (10)
  1. ADALIMUMAB [Suspect]
     Active Substance: ADALIMUMAB
     Indication: Ulcer
     Dosage: 160 MG, QW
     Route: 065
  2. CYCLOSPORINE [Suspect]
     Active Substance: CYCLOSPORINE
     Indication: Ulcer
     Dosage: 3.5 MG, QD
     Route: 065
  3. HUMAN IMMUNOGLOBULIN G [Suspect]
     Active Substance: HUMAN IMMUNOGLOBULIN G
     Indication: Ulcer
     Route: 065
  4. INFLIXIMAB [Suspect]
     Active Substance: INFLIXIMAB
     Indication: Ulcer
     Route: 065
  5. MYCOPHENOLATE MOFETIL [Suspect]
     Active Substance: MYCOPHENOLATE MOFETIL
     Indication: Ulcer
     Dosage: 1 MG, BID
     Route: 065
  6. METHYLPREDNISOLONE [Suspect]
     Active Substance: METHYLPREDNISOLONE
     Indication: Ulcer
     Dosage: 500 MG, QD
     Route: 042
  7. PREDNISOLONE [Suspect]
     Active Substance: PREDNISOLONE
     Indication: Ulcer
     Route: 065
  8. SECUKINUMAB [Suspect]
     Active Substance: SECUKINUMAB
     Indication: Ulcer
     Route: 065
  9. TACROLIMUS [Suspect]
     Active Substance: TACROLIMUS
     Indication: Ulcer
     Dosage: 2 MG, Q12H
     Route: 065
  10. USTEKINUMAB [Suspect]
     Active Substance: USTEKINUMAB
     Indication: Ulcer
     Route: 065

REACTIONS (2)
  - Disease progression [Unknown]
  - Drug ineffective [Unknown]
